FAERS Safety Report 11492776 (Version 1)
Quarter: 2015Q3

REPORT INFORMATION
  Report Type: Spontaneous
  Country: US (occurrence: US)
  Receive Date: 20150911
  Receipt Date: 20150911
  Transmission Date: 20151125
  Serious: Yes (Hospitalization, Other)
  Sender: FDA-Public Use
  Company Number: US-ROCHE-1616688

PATIENT
  Sex: Male

DRUGS (14)
  1. PROMETHAZINE [Concomitant]
     Active Substance: PROMETHAZINE\PROMETHAZINE HYDROCHLORIDE
     Route: 048
     Dates: start: 20141113
  2. TRAMADOL. [Concomitant]
     Active Substance: TRAMADOL
     Route: 048
  3. LEVAQUIN [Concomitant]
     Active Substance: LEVOFLOXACIN
     Route: 048
     Dates: start: 20150504
  4. AVASTIN [Suspect]
     Active Substance: BEVACIZUMAB
     Indication: COLORECTAL CANCER METASTATIC
     Route: 065
  5. IRINOTECAN [Concomitant]
     Active Substance: IRINOTECAN
  6. IBUPROFEN. [Concomitant]
     Active Substance: IBUPROFEN
     Route: 048
  7. ZOFRAN [Concomitant]
     Active Substance: ONDANSETRON HYDROCHLORIDE
     Route: 048
     Dates: start: 20141113
  8. FUROSEMIDE. [Concomitant]
     Active Substance: FUROSEMIDE
     Route: 048
     Dates: start: 20150211
  9. MIRTAZAPINE. [Concomitant]
     Active Substance: MIRTAZAPINE
     Dosage: TAKE ONE TABLET BY MOUTH EVERY NIGHT AT BEDTIME
     Route: 048
     Dates: start: 20141208
  10. MORPHINE SULPHATE [Concomitant]
     Active Substance: MORPHINE SULFATE
     Dosage: 20 MG/ML TAKE 1 TO 2 ML PER 3 TO 4 HRS WHEN PAINS
     Route: 048
     Dates: start: 20141113
  11. CARVEDILOL. [Concomitant]
     Active Substance: CARVEDILOL
     Route: 048
  12. JANUVIA [Concomitant]
     Active Substance: SITAGLIPTIN PHOSPHATE
     Route: 048
  13. OMEPRAZOLE. [Concomitant]
     Active Substance: OMEPRAZOLE
     Route: 065
     Dates: start: 20150520
  14. AVASTIN [Suspect]
     Active Substance: BEVACIZUMAB
     Indication: LUNG CANCER METASTATIC

REACTIONS (7)
  - Weight decreased [Unknown]
  - Clostridium difficile infection [Unknown]
  - Gastrointestinal perforation [Unknown]
  - Abdominal pain [Unknown]
  - Pneumonia [Recovered/Resolved]
  - Anaemia [Unknown]
  - Adenocarcinoma [Unknown]
